FAERS Safety Report 4383554-3 (Version None)
Quarter: 2004Q2

REPORT INFORMATION
  Report Type: 
  Country: None (occurrence: None)
  Receive Date: 20040618
  Receipt Date: 20040306
  Transmission Date: 20050107
  Serious: Yes (Death, Other)
  Sender: FDA-Public Use
  Company Number: 2001061050HU

PATIENT
  Age: 69 Year
  Sex: Male

DRUGS (16)
  1. CAMPTOSAR [Suspect]
     Indication: COLON CANCER
     Dosage: 350 MG, CYCLIC, IV
     Route: 042
     Dates: start: 20010307, end: 20010523
  2. LEUCOVORIN CALCIUM [Suspect]
     Indication: COLON CANCER
     Dosage: 780 MG, CYCLIC, IV
     Route: 042
     Dates: start: 20010307, end: 20010523
  3. FLUOROURACIL [Suspect]
     Indication: COLON CANCER
     Dosage: SEE IMAGE
     Route: 042
     Dates: start: 20010307, end: 20010523
  4. FLUOROURACIL [Suspect]
  5. ACIDUM ACETYLOSALICYLICUM [Concomitant]
  6. NITROGLYCERIN [Concomitant]
  7. PANANGIN (MAGNESIUM ASPARTATE, ASPARTATE POTASSIUM) [Concomitant]
  8. PENTOXIFYLLINE [Concomitant]
  9. VINPOCETINE (VINPOCETINE) [Concomitant]
  10. DILTIAZEM [Concomitant]
  11. MEPROBAMATE [Concomitant]
  12. RANITIDINE [Concomitant]
  13. METHYLPREDNISOLONE [Concomitant]
  14. SALINA (POTASSIUM IODIDE) [Concomitant]
  15. FUROSEMIDE [Concomitant]
  16. DIGOXIN [Concomitant]

REACTIONS (9)
  - CARDIOGENIC SHOCK [None]
  - CARDIOPULMONARY FAILURE [None]
  - FATIGUE [None]
  - GENERAL PHYSICAL HEALTH DETERIORATION [None]
  - HYPERGLYCAEMIA [None]
  - HYPERTENSIVE CARDIOMYOPATHY [None]
  - HYPOTENSION [None]
  - LEUKOPENIA [None]
  - PULMONARY OEDEMA [None]
